FAERS Safety Report 9357413 (Version 2)
Quarter: 2013Q3

REPORT INFORMATION
  Report Type: Spontaneous
  Country: US (occurrence: None)
  Receive Date: 20130617
  Receipt Date: 20130827
  Transmission Date: 20140515
  Serious: Yes (Death)
  Sender: FDA-Public Use
  Company Number: 2013050108

PATIENT
  Age: 19 Year
  Sex: Male
  Weight: 48.99 kg

DRUGS (17)
  1. COLYTE [Suspect]
     Indication: BOWEL PREPARATION
     Dates: start: 20110921, end: 20110922
  2. COLYTE [Suspect]
     Indication: CONVULSION
     Dates: start: 20110921, end: 20110922
  3. COLYTE [Suspect]
     Indication: CONSTIPATION
     Dates: start: 20110921, end: 20110922
  4. LITHIUM(LITHIUM) [Concomitant]
  5. VALIUM(DIAZEPAM) [Concomitant]
  6. CLONIDINE(CLONIDINE) [Concomitant]
  7. LEVOXYL(LEVOTHYROXINE SODIUM) [Concomitant]
  8. ZYRTEC(CETIRIZINE) [Concomitant]
  9. THORAZINE(CHLORPROMAZINE) [Concomitant]
  10. COGENTIN(BENZTROPINE MESYLATE) [Concomitant]
  11. LISINOPRIL(LISINOPRIL) [Concomitant]
  12. SEROQUEL(QUETIAPINE) [Concomitant]
  13. AMANTADINE(AMANTADINE HYDROCHLORIDE) [Concomitant]
  14. COLACE [Concomitant]
  15. VITAMINS [Concomitant]
  16. FISH OIL(EICOSAPENTAENOIC ACID, DOCOSAHEXAENOIC ACID) [Concomitant]
  17. CHLORPROMAZINE(CHLORPROMAZINE) [Concomitant]

REACTIONS (3)
  - Megacolon [None]
  - Disease complication [None]
  - Incorrect drug administration rate [None]
